FAERS Safety Report 10042648 (Version 2)
Quarter: 2014Q2

REPORT INFORMATION
  Report Type: Spontaneous
  Country: US (occurrence: US)
  Receive Date: 20140327
  Receipt Date: 20140410
  Transmission Date: 20141212
  Serious: No
  Sender: FDA-Public Use
  Company Number: US-ACTELION-A-US2014-96353

PATIENT
  Age: 37 Year
  Sex: Female

DRUGS (1)
  1. VELETRI [Suspect]
     Indication: PULMONARY ARTERIAL HYPERTENSION
     Dosage: 17 NG/KG, PER MIN
     Route: 042
     Dates: start: 20130404

REACTIONS (7)
  - Contraceptive implant [Recovering/Resolving]
  - Dermatitis contact [Recovering/Resolving]
  - Local swelling [Recovering/Resolving]
  - Throat tightness [Recovering/Resolving]
  - Neck pain [Recovering/Resolving]
  - Headache [Recovering/Resolving]
  - Anxiety [Unknown]
